FAERS Safety Report 11277149 (Version 1)
Quarter: 2015Q3

REPORT INFORMATION
  Report Type: Report from Study
  Country: GB (occurrence: GB)
  Receive Date: 20150716
  Receipt Date: 20150716
  Transmission Date: 20151125
  Serious: Yes (Other)
  Sender: FDA-Public Use
  Company Number: GB-PFIZER INC-2015229075

PATIENT
  Age: 73 Year
  Sex: Female

DRUGS (4)
  1. CARBAMAZEPINE. [Concomitant]
     Active Substance: CARBAMAZEPINE
     Indication: COMPLEX PARTIAL SEIZURES
     Dosage: UNK
  2. PHENYTOIN. [Suspect]
     Active Substance: PHENYTOIN
     Indication: COMPLEX PARTIAL SEIZURES
     Dosage: UNK
  3. CLONAZEPAM. [Concomitant]
     Active Substance: CLONAZEPAM
     Indication: COMPLEX PARTIAL SEIZURES
     Dosage: UNK
  4. PHENOBARBITONE [Concomitant]
     Active Substance: PHENOBARBITAL
     Indication: COMPLEX PARTIAL SEIZURES
     Dosage: UNK

REACTIONS (2)
  - Cerebral atrophy [Unknown]
  - Cerebellar atrophy [Unknown]
